FAERS Safety Report 10598292 (Version 1)
Quarter: 2014Q4

REPORT INFORMATION
  Report Type: Spontaneous
  Country: GB (occurrence: None)
  Receive Date: 20141119
  Receipt Date: 20141119
  Transmission Date: 20150529
  Serious: Yes (Hospitalization)
  Sender: FDA-Public Use
  Company Number: GB2014K4903LIT

PATIENT
  Age: 61 Year
  Sex: Female

DRUGS (6)
  1. LANSOPRAZOLE GENERIC (LANSOPRAZOLE) UNKNOWN [Suspect]
     Active Substance: LANSOPRAZOLE
     Indication: PRODUCT USED FOR UNKNOWN INDICATION
  2. NOVOMIX 30 (INSULIN) [Concomitant]
  3. PREDNISOLONE. [Concomitant]
     Active Substance: PREDNISOLONE
  4. THYROXIN [Concomitant]
     Active Substance: LEVOTHYROXINE
  5. ASPIRIN. [Concomitant]
     Active Substance: ASPIRIN
  6. METFORMIN [Concomitant]
     Active Substance: METFORMIN HYDROCHLORIDE

REACTIONS (9)
  - Hepatic fibrosis [None]
  - Alveolitis allergic [None]
  - Hepatic steatosis [None]
  - Pneumonitis [None]
  - Biliary dilatation [None]
  - Dyspnoea at rest [None]
  - Cholestasis [None]
  - Hypoxia [None]
  - Drug-induced liver injury [None]
